FAERS Safety Report 8742046 (Version 2)
Quarter: 2012Q4

REPORT INFORMATION
  Report Type: 
  Country: JP (occurrence: JP)
  Receive Date: 20120824
  Receipt Date: 20120907
  Transmission Date: 20130627
  Serious: Yes (Hospitalization, Other)
  Sender: FDA-Public Use
  Company Number: JP-MPIJNJ-2011-06400

PATIENT

DRUGS (11)
  1. VELCADE [Suspect]
     Indication: MULTIPLE MYELOMA
     Dosage: 2.4 mg, UNK
     Route: 042
     Dates: start: 20111114, end: 20111124
  2. PIPERACILLIN TAZOBACTAM [Suspect]
     Indication: INFECTION
  3. DEXAMETHASONE [Concomitant]
     Indication: MULTIPLE MYELOMA
     Dosage: 10 mg, UNK
     Route: 042
     Dates: start: 20111014, end: 20111125
  4. URALYT                             /01779901/ [Concomitant]
     Indication: HYPERURICAEMIA
     Dosage: UNK
     Route: 048
  5. LOSARTAN POTASSIUM [Concomitant]
     Indication: HYPERTENSION
     Route: 048
  6. ACECOL [Concomitant]
     Indication: HYPERTENSION
     Route: 048
  7. MECOBALAMIN [Concomitant]
     Indication: PROPHYLAXIS
     Route: 048
  8. GOSHAJINKIGAN [Concomitant]
     Indication: PROPHYLAXIS
     Route: 048
  9. TAKEPRON [Concomitant]
     Route: 048
  10. ALLELOCK [Concomitant]
     Route: 048
  11. OXINORM                            /00547301/ [Concomitant]
     Route: 048

REACTIONS (8)
  - Interstitial lung disease [Recovering/Resolving]
  - Neurogenic bladder [Recovering/Resolving]
  - Neuropathy peripheral [Not Recovered/Not Resolved]
  - Diarrhoea [Recovered/Resolved]
  - Syncope [Recovered/Resolved]
  - Toxic skin eruption [Recovering/Resolving]
  - Infection [Unknown]
  - Dizziness [Recovered/Resolved]
